FAERS Safety Report 10761820 (Version 3)
Quarter: 2015Q1

REPORT INFORMATION
  Report Type: Spontaneous
  Country: JP (occurrence: JP)
  Receive Date: 20150204
  Receipt Date: 20150213
  Transmission Date: 20150721
  Serious: Yes (Death)
  Sender: FDA-Public Use
  Company Number: JP-JNJFOC-20150201747

PATIENT
  Age: 90 Year
  Sex: Male

DRUGS (2)
  1. REMINYL [Suspect]
     Active Substance: GALANTAMINE
     Indication: VASCULAR DEMENTIA
     Route: 048
     Dates: start: 2014, end: 2014
  2. PLETAAL [Concomitant]
     Active Substance: CILOSTAZOL
     Route: 048

REACTIONS (1)
  - Pneumonia [Fatal]
